FAERS Safety Report 19042742 (Version 2)
Quarter: 2021Q3

REPORT INFORMATION
  Report Type: Spontaneous
  Country: US (occurrence: US)
  Receive Date: 20210322
  Receipt Date: 20210712
  Transmission Date: 20211014
  Serious: Yes (Other)
  Sender: FDA-Public Use
  Company Number: US-TEVA-2021-US-1890777

PATIENT
  Age: 67 Year
  Sex: Female

DRUGS (16)
  1. LIDOCAINE. [Suspect]
     Active Substance: LIDOCAINE
     Indication: DYSKINESIA
     Route: 048
     Dates: start: 2008
  2. QUETIAPINE. [Suspect]
     Active Substance: QUETIAPINE
     Indication: DYSKINESIA
     Dosage: 50MG
     Route: 065
     Dates: start: 201101
  3. BENZATROPINE [Suspect]
     Active Substance: BENZTROPINE
     Indication: DYSKINESIA
     Route: 065
     Dates: start: 2008
  4. PRIMIDONE. [Suspect]
     Active Substance: PRIMIDONE
     Indication: PARKINSONISM
     Route: 065
     Dates: start: 2015
  5. TETRABENAZINE. [Suspect]
     Active Substance: TETRABENAZINE
     Dosage: 37.5 MILLIGRAM DAILY;
     Route: 065
     Dates: start: 201112
  6. SINEMET [Suspect]
     Active Substance: CARBIDOPA\LEVODOPA
     Indication: PARKINSONISM
     Route: 065
     Dates: start: 2015
  7. TRAZODONE [Concomitant]
     Active Substance: TRAZODONE HYDROCHLORIDE
     Indication: DEPRESSION
     Dosage: 100MG
     Route: 065
     Dates: start: 201112
  8. PROPRANOLOL [Suspect]
     Active Substance: PROPRANOLOL HYDROCHLORIDE
     Indication: PARKINSONISM
     Dosage: 20 MILLIGRAM DAILY;
     Route: 065
  9. PRAMIPEXOLE. [Suspect]
     Active Substance: PRAMIPEXOLE
     Indication: PARKINSONISM
     Route: 065
     Dates: start: 2015
  10. QUETIAPINE. [Suspect]
     Active Substance: QUETIAPINE
     Dosage: 200MG
     Route: 065
     Dates: start: 201112
  11. TETRABENAZINE. [Suspect]
     Active Substance: TETRABENAZINE
     Dosage: 75 MILLIGRAM DAILY;
     Route: 065
     Dates: start: 2015
  12. CITALOPRAM [Concomitant]
     Active Substance: CITALOPRAM HYDROBROMIDE
     Indication: PRODUCT USED FOR UNKNOWN INDICATION
     Route: 065
     Dates: start: 1980, end: 2010
  13. PROPRANOLOL [Suspect]
     Active Substance: PROPRANOLOL HYDROCHLORIDE
     Dosage: UP TO 20MG THRICE DAILY
     Route: 065
     Dates: start: 2015
  14. TETRABENAZINE. [Suspect]
     Active Substance: TETRABENAZINE
     Indication: DYSKINESIA
     Dosage: 25 MILLIGRAM DAILY;
     Route: 065
     Dates: start: 201106
  15. AMANTADINE. [Suspect]
     Active Substance: AMANTADINE HYDROCHLORIDE
     Indication: PARKINSONISM
     Route: 065
     Dates: start: 2015
  16. FLUOXETINE [Concomitant]
     Active Substance: FLUOXETINE HYDROCHLORIDE
     Indication: DEPRESSION
     Dosage: 50MG
     Route: 065
     Dates: start: 201112

REACTIONS (3)
  - Parkinsonism [Recovering/Resolving]
  - Drug ineffective [Unknown]
  - Parkinsonism [Recovering/Resolving]

NARRATIVE: CASE EVENT DATE: 2012
